FAERS Safety Report 26066190 (Version 1)
Quarter: 2025Q4

REPORT INFORMATION
  Report Type: Spontaneous
  Country: US (occurrence: None)
  Receive Date: 20251119
  Receipt Date: 20251119
  Transmission Date: 20260118
  Serious: Yes (Life-Threatening, Hospitalization)
  Sender: FDA-CTU
  Company Number: None

PATIENT
  Age: 81 Year
  Sex: Female
  Weight: 60.5 kg

DRUGS (6)
  1. CARBAMAZEPINE [Suspect]
     Active Substance: CARBAMAZEPINE
     Indication: Seizure
     Dosage: FREQUENCY : 3 TIMES A DAY;?
     Route: 048
     Dates: start: 20050801, end: 20251102
  2. FAMOTIDINE [Concomitant]
     Active Substance: FAMOTIDINE
  3. ATORVASTATIN [Concomitant]
     Active Substance: ATORVASTATIN
  4. Mirabegron ER 50mg [Concomitant]
  5. PANTOPRAZOLE SODIUM [Concomitant]
     Active Substance: PANTOPRAZOLE SODIUM
  6. XARELTO [Concomitant]
     Active Substance: RIVAROXABAN

REACTIONS (6)
  - Acute kidney injury [None]
  - Thrombocytopenia [None]
  - Acute respiratory failure [None]
  - Autoimmune haemolytic anaemia [None]
  - Drug reaction with eosinophilia and systemic symptoms [None]
  - Drug eruption [None]

NARRATIVE: CASE EVENT DATE: 20251014
